FAERS Safety Report 9099782 (Version 1)
Quarter: 2013Q1

REPORT INFORMATION
  Report Type: Spontaneous
  Country: US (occurrence: US)
  Receive Date: 20130215
  Receipt Date: 20130215
  Transmission Date: 20140127
  Serious: Yes (Life-Threatening, Other)
  Sender: FDA-Public Use
  Company Number: PHEH2013US003615

PATIENT
  Sex: Female
  Weight: 78 kg

DRUGS (4)
  1. TASIGNA [Suspect]
     Indication: CHRONIC MYELOID LEUKAEMIA
     Route: 048
  2. K-PHOS [Concomitant]
     Indication: HYPOKALAEMIA
     Route: 048
     Dates: start: 20060915
  3. TRAMADOL [Concomitant]
     Indication: ARTHRALGIA
     Route: 048
     Dates: start: 20100713
  4. ALEVE [Concomitant]
     Indication: ARTHRALGIA
     Route: 048
     Dates: start: 20111017

REACTIONS (3)
  - Cerebrovascular accident [Recovered/Resolved with Sequelae]
  - VIIth nerve paralysis [Unknown]
  - Carpal tunnel syndrome [Unknown]
